FAERS Safety Report 7088451-0 (Version None)
Quarter: 2010Q4

REPORT INFORMATION
  Report Type: 
  Country: None (occurrence: None)
  Receive Date: 20101108
  Receipt Date: 20101101
  Transmission Date: 20110411
  Serious: Yes (Other)
  Sender: FDA-Public Use
  Company Number: BR-PFIZER INC-2010122443

PATIENT
  Age: 52 Year
  Sex: Female
  Weight: 81 kg

DRUGS (4)
  1. CHAMPIX [Suspect]
     Indication: TOBACCO USER
     Dosage: UNK
     Route: 048
     Dates: start: 20091208
  2. CHAMPIX [Suspect]
     Indication: NICOTINE DEPENDENCE
     Dosage: 1 MG, 1X/DAY
     Route: 048
  3. CHAMPIX [Suspect]
     Dosage: UNK
     Route: 048
     Dates: start: 20100922
  4. RIVOTRIL [Concomitant]
     Dosage: 2 MG, 1X/DAY

REACTIONS (9)
  - ANXIETY [None]
  - ASTHMA [None]
  - BIPOLAR DISORDER [None]
  - DEPRESSION [None]
  - EMPHYSEMA [None]
  - FEAR [None]
  - MALAISE [None]
  - NAUSEA [None]
  - TREATMENT NONCOMPLIANCE [None]
